FAERS Safety Report 4819235-9 (Version None)
Quarter: 2005Q4

REPORT INFORMATION
  Report Type: 
  Country: None (occurrence: None)
  Receive Date: 20051103
  Receipt Date: 20050314
  Transmission Date: 20060501
  Serious: Yes (Death, Hospitalization)
  Sender: FDA-Public Use
  Company Number: US-MERCK-0503USA02952

PATIENT
  Age: 48 Year
  Sex: Male
  Weight: 132 kg

DRUGS (4)
  1. VIOXX [Suspect]
     Indication: ARTHRITIS
     Route: 048
     Dates: start: 19980901, end: 20040901
  2. VIOXX [Suspect]
     Indication: JOINT SWELLING
     Route: 048
     Dates: start: 19980901, end: 20040901
  3. LOPRESSOR [Concomitant]
     Route: 065
  4. ALLOPURINOL [Concomitant]
     Route: 065

REACTIONS (22)
  - ANAEMIA [None]
  - ARTHROPATHY [None]
  - DEATH [None]
  - DEHYDRATION [None]
  - EMOTIONAL DISTRESS [None]
  - GASTRITIS [None]
  - GASTROINTESTINAL DISORDER [None]
  - GENERAL SYMPTOM [None]
  - GOUT [None]
  - JOINT SPRAIN [None]
  - METASTASES TO KIDNEY [None]
  - METASTASES TO LIVER [None]
  - METASTASES TO LUNG [None]
  - METASTASES TO PERITONEUM [None]
  - METASTATIC NEOPLASM [None]
  - MYOCARDIAL INFARCTION [None]
  - NEUTROPENIA [None]
  - RENAL FAILURE [None]
  - RESPIRATORY FAILURE [None]
  - SHOCK [None]
  - SLEEP APNOEA SYNDROME [None]
  - WEIGHT DECREASED [None]
